FAERS Safety Report 5957574-9 (Version None)
Quarter: 2008Q4

REPORT INFORMATION
  Report Type: 
  Country: None (occurrence: None)
  Receive Date: 20081119
  Receipt Date: 20081110
  Transmission Date: 20090506
  Serious: Yes (Other)
  Sender: FDA-Public Use
  Company Number: BR-RANBAXY-2008US-19232

PATIENT

DRUGS (1)
  1. TRIAMCINOLONE [Suspect]
     Indication: GINGIVITIS
     Dosage: UNK, UNK
     Dates: end: 20081031

REACTIONS (1)
  - PARAESTHESIA ORAL [None]
